FAERS Safety Report 24628084 (Version 1)
Quarter: 2024Q4

REPORT INFORMATION
  Report Type: Report from Study
  Country: BR (occurrence: BR)
  Receive Date: 20241117
  Receipt Date: 20241117
  Transmission Date: 20250114
  Serious: Yes (Death)
  Sender: UCB
  Company Number: BR-UCBSA-2024059469

PATIENT
  Age: 73 Year
  Sex: Female

DRUGS (1)
  1. CERTOLIZUMAB PEGOL [Suspect]
     Active Substance: CERTOLIZUMAB PEGOL
     Indication: Rheumatoid arthritis
     Dosage: UNK
     Route: 058
     Dates: start: 202107

REACTIONS (2)
  - Intestinal perforation [Fatal]
  - Systemic infection [Fatal]

NARRATIVE: CASE EVENT DATE: 20240616
